FAERS Safety Report 10032610 (Version 6)
Quarter: 2014Q2

REPORT INFORMATION
  Report Type: Spontaneous
  Country: US (occurrence: US)
  Receive Date: 20140324
  Receipt Date: 20140613
  Transmission Date: 20141212
  Serious: Yes (Hospitalization)
  Sender: FDA-Public Use
  Company Number: US-GLAXOSMITHKLINE-A1065162A

PATIENT
  Age: 73 Year
  Sex: Male

DRUGS (18)
  1. COREG [Suspect]
     Indication: CARDIAC FAILURE CONGESTIVE
     Dosage: 10MG TWICE PER DAY
     Route: 048
     Dates: start: 1999, end: 2000
  2. COREG CR [Suspect]
     Indication: CARDIAC FAILURE CONGESTIVE
     Dosage: 20MG PER DAY
     Route: 048
     Dates: start: 2000
  3. LISINOPRIL [Concomitant]
  4. AMIODARONE [Concomitant]
  5. ASPIRIN [Concomitant]
  6. BIOFLEX [Concomitant]
  7. CRESTOR [Concomitant]
  8. DIGOXIN [Concomitant]
  9. HUMALOG [Concomitant]
  10. ISOSORBIDE [Concomitant]
  11. METOLAZONE [Concomitant]
  12. DAILY MULTIVITAMIN [Concomitant]
  13. SPIRONOLACTONE [Concomitant]
  14. TORSEMIDE [Concomitant]
  15. TYLENOL ARTHRITIS [Concomitant]
  16. VIT B [Concomitant]
  17. VITAMIN D [Concomitant]
  18. COUMADIN [Concomitant]

REACTIONS (15)
  - Cardiac pacemaker insertion [Unknown]
  - Implantable defibrillator insertion [Unknown]
  - Blood creatinine increased [Not Recovered/Not Resolved]
  - Temperature intolerance [Not Recovered/Not Resolved]
  - Syncope [Unknown]
  - Renal impairment [Not Recovered/Not Resolved]
  - Abasia [Recovered/Resolved]
  - Atrial fibrillation [Unknown]
  - Malaise [Unknown]
  - Pallor [Unknown]
  - Cardiac failure congestive [Not Recovered/Not Resolved]
  - Renal failure [Not Recovered/Not Resolved]
  - Arrhythmia [Unknown]
  - Fluid imbalance [Unknown]
  - Adverse event [Unknown]
